FAERS Safety Report 9171343 (Version 1)
Quarter: 2013Q1

REPORT INFORMATION
  Report Type: Other
  Country: SE (occurrence: SE)
  Receive Date: 20130319
  Receipt Date: 20130319
  Transmission Date: 20140127
  Serious: Yes (Other)
  Sender: FDA-Public Use
  Company Number: SE-FRI-1000043311

PATIENT
  Age: 55 Year
  Sex: Female

DRUGS (5)
  1. DILTIAZEM [Suspect]
  2. LOSARTAN [Suspect]
     Indication: HYPERTENSION
     Dosage: 50 MG
  3. PREDNISOLONE [Concomitant]
     Indication: NEURODERMATITIS
     Dosage: 5 MG
  4. TAVEGYL [Concomitant]
     Indication: NEURODERMATITIS
     Dosage: 3 MG
  5. TRIPTANS (NOS) [Concomitant]
     Indication: MIGRAINE
     Dosage: AS NEEDED

REACTIONS (4)
  - Electrocardiogram ST segment elevation [Unknown]
  - Chest pain [Unknown]
  - Blood pressure decreased [Unknown]
  - Cardiac failure [Unknown]
